FAERS Safety Report 9436506 (Version 1)
Quarter: 2013Q3

REPORT INFORMATION
  Report Type: Spontaneous
  Country: US (occurrence: US)
  Receive Date: 20130802
  Receipt Date: 20130802
  Transmission Date: 20140515
  Serious: Yes (Other)
  Sender: FDA-Public Use
  Company Number: US-ROCHE-1255807

PATIENT
  Sex: 0

DRUGS (2)
  1. RITUXAN [Suspect]
     Indication: SCLERODERMA
     Route: 065
  2. CELLCEPT [Suspect]
     Indication: SCLERODERMA
     Route: 065

REACTIONS (2)
  - Lymphoma [Unknown]
  - Necrosis [Unknown]
